FAERS Safety Report 15548142 (Version 1)
Quarter: 2018Q4

REPORT INFORMATION
  Report Type: Spontaneous
  Country: FR (occurrence: FR)
  Receive Date: 20181024
  Receipt Date: 20181024
  Transmission Date: 20190205
  Serious: Yes (Other)
  Sender: FDA-Public Use
  Company Number: FR-SHIRE-FR201840170

PATIENT

DRUGS (3)
  1. ANAKINRA [Concomitant]
     Active Substance: ANAKINRA
     Indication: KAWASAKI^S DISEASE
  2. ASPIRIN. [Concomitant]
     Active Substance: ASPIRIN
     Indication: KAWASAKI^S DISEASE
     Dosage: UNK
  3. KIOVIG [Suspect]
     Active Substance: HUMAN IMMUNOGLOBULIN G
     Indication: KAWASAKI^S DISEASE
     Dosage: 2G/KG
     Route: 042

REACTIONS (1)
  - Drug ineffective [Unknown]
